FAERS Safety Report 11434314 (Version 1)
Quarter: 2015Q3

REPORT INFORMATION
  Report Type: Spontaneous
  Country: US (occurrence: None)
  Receive Date: 20150828
  Receipt Date: 20150828
  Transmission Date: 20151125
  Serious: No
  Sender: FDA-Public Use
  Company Number: None

PATIENT
  Age: 22 Year
  Sex: Female
  Weight: 77.11 kg

DRUGS (5)
  1. PRE-NATAL VITAMIN [Concomitant]
  2. LEVOTHEROXINE [Concomitant]
  3. MIRENA [Suspect]
     Active Substance: LEVONORGESTREL
  4. BIOTIN VITAMIN [Concomitant]
  5. VITAMIN B12 [Concomitant]
     Active Substance: CYANOCOBALAMIN

REACTIONS (1)
  - Alopecia [None]

NARRATIVE: CASE EVENT DATE: 20150826
